FAERS Safety Report 20505743 (Version 1)
Quarter: 2022Q1

REPORT INFORMATION
  Report Type: Spontaneous
  Country: US (occurrence: None)
  Receive Date: 20220223
  Receipt Date: 20220223
  Transmission Date: 20220423
  Serious: No
  Sender: FDA-Public Use
  Company Number: US-Hikma Pharmaceuticals USA Inc.-US-H14001-21-04302

PATIENT
  Sex: Female

DRUGS (1)
  1. FLUTICASONE [Suspect]
     Active Substance: FLUTICASONE
     Indication: Bronchitis chronic
     Dosage: ONE SPRAY IN EACH NOSTRIL, TWICE A DAY
     Route: 045

REACTIONS (3)
  - Product dose omission issue [Unknown]
  - Muscular weakness [Unknown]
  - Product use issue [Unknown]
